FAERS Safety Report 16981927 (Version 2)
Quarter: 2019Q4

REPORT INFORMATION
  Report Type: Spontaneous
  Country: BR (occurrence: BR)
  Receive Date: 20191101
  Receipt Date: 20191218
  Transmission Date: 20200122
  Serious: Yes (Other)
  Sender: FDA-Public Use
  Company Number: BR-SA-2019SA288004

PATIENT
  Sex: Male
  Weight: 72 kg

DRUGS (9)
  1. PREDNISONE. [Concomitant]
     Active Substance: PREDNISONE
     Indication: CARDIAC DISORDER
     Dosage: 1 DF, QD
     Route: 048
     Dates: start: 201906
  2. AAS [Concomitant]
     Active Substance: ASPIRIN
     Indication: THROMBOCYTOPENIA
     Dosage: 1 DF, QD
     Route: 048
     Dates: start: 201904
  3. LANTUS [Suspect]
     Active Substance: INSULIN GLARGINE
     Indication: DIABETES MELLITUS
     Dosage: ONCE BY MORNING AND ONCE AT NIGHT
     Route: 058
     Dates: start: 2004
  4. GLIFAGE [Concomitant]
     Active Substance: METFORMIN HYDROCHLORIDE
     Indication: DIABETES MELLITUS
     Dosage: 2 DF, QD
     Route: 048
     Dates: start: 201908
  5. LANTUS [Suspect]
     Active Substance: INSULIN GLARGINE
     Dosage: 56 IU, QD
     Route: 065
     Dates: start: 1999
  6. ATORVASTATIN [Concomitant]
     Active Substance: ATORVASTATIN
     Indication: CARDIAC DISORDER
     Dosage: 1 DF, QD
     Route: 048
  7. TRAYENTA [Concomitant]
     Active Substance: LINAGLIPTIN
     Indication: DIABETES MELLITUS
     Dosage: 1 DF, QD
     Route: 048
  8. TACROLIMUS. [Concomitant]
     Active Substance: TACROLIMUS
     Indication: RENAL DISORDER
     Dosage: 2 DF, BID
     Route: 048
     Dates: start: 201903
  9. MYCOPHENOLATE [Concomitant]
     Active Substance: MYCOPHENOLIC ACID
     Indication: RENAL DISORDER
     Dosage: 2 DF, QD
     Route: 048
     Dates: start: 201903

REACTIONS (11)
  - Renal disorder [Unknown]
  - Catheterisation cardiac [Unknown]
  - Myocardial infarction [Recovered/Resolved]
  - Injection site discolouration [Recovered/Resolved]
  - Cardiac operation [Unknown]
  - Mammoplasty [Unknown]
  - Renal failure [Unknown]
  - Blood glucose abnormal [Recovering/Resolving]
  - Inappropriate schedule of product administration [Unknown]
  - Blood glucose increased [Unknown]
  - Renal transplant [Unknown]

NARRATIVE: CASE EVENT DATE: 2017
